FAERS Safety Report 22109178 (Version 7)
Quarter: 2023Q4

REPORT INFORMATION
  Report Type: Other
  Country: RO (occurrence: None)
  Receive Date: 20230317
  Receipt Date: 20231021
  Transmission Date: 20240110
  Serious: Yes (Hospitalization)
  Sender: FDA-Public Use
  Company Number: RO-ROCHE-3247666

PATIENT
  Age: 64 Year
  Sex: Male
  Weight: 74 kg

DRUGS (3)
  1. ATEZOLIZUMAB [Suspect]
     Active Substance: ATEZOLIZUMAB
     Indication: Hepatocellular carcinoma
     Dosage: LAST STUDY DRUG ADMIN PRIOR AE IS 1200 MG: 19/DEC/2022?START DATE OF MOST RECENT DOSE OF STUDY DRUG
     Route: 041
     Dates: start: 20221125
  2. BEVACIZUMAB [Suspect]
     Active Substance: BEVACIZUMAB
     Indication: Hepatocellular carcinoma
     Route: 065
     Dates: start: 20221125
  3. LACTULOSE [Concomitant]
     Active Substance: LACTULOSE
     Dates: start: 20230228, end: 20230228

REACTIONS (4)
  - Blood bilirubin increased [Not Recovered/Not Resolved]
  - Bilirubin conjugated increased [Not Recovered/Not Resolved]
  - Hepatic encephalopathy [Recovered/Resolved]
  - Hypertension [Not Recovered/Not Resolved]

NARRATIVE: CASE EVENT DATE: 20221219
